FAERS Safety Report 10048703 (Version 2)
Quarter: 2014Q4

REPORT INFORMATION
  Report Type: Report from Study
  Country: US (occurrence: US)
  Receive Date: 20140331
  Receipt Date: 20141114
  Transmission Date: 20150528
  Serious: Yes (Other)
  Sender: FDA-Public Use
  Company Number: US-VERTEX PHARMACEUTICALS INC-2014-001701

PATIENT
  Age: 58 Year
  Sex: Male

DRUGS (19)
  1. PEGINTERFERON LAMBDA-1A [Suspect]
     Active Substance: PEGINTERFERON LAMBDA-1A
     Indication: CHRONIC HEPATITIS C
     Dosage: DOSAGE FORM: UNSPECIFIED
     Route: 058
     Dates: start: 20130821
  2. Z-RIBAVIRIN [Suspect]
     Active Substance: RIBAVIRIN
     Indication: CHRONIC HEPATITIS C
     Dosage: 1200 MG, QD
     Route: 048
     Dates: start: 20130821
  3. ALBUTEROL. [Concomitant]
     Active Substance: ALBUTEROL
     Dosage: DOSAGE FORM: UNSPECIFIED
     Route: 065
     Dates: start: 20100410
  4. TEMAZEPAM. [Concomitant]
     Active Substance: TEMAZEPAM
     Dosage: DOSAGE FORM: UNSPECIFIED
     Route: 065
     Dates: start: 20130821
  5. OATMEAL. [Concomitant]
     Active Substance: OATMEAL
     Dosage: DOSAGE FORM: UNSPECIFIED
     Route: 065
     Dates: start: 20130828
  6. VX-950 (TELAPREVIR) [Suspect]
     Active Substance: TELAPREVIR
     Indication: CHRONIC HEPATITIS C
     Dosage: 2250 MG, QD
     Route: 048
     Dates: start: 20130821
  7. BUDESONIDE W/FORMOTEROL FUMARATE [Concomitant]
     Active Substance: BUDESONIDE\FORMOTEROL FUMARATE
     Dosage: DOSAGE FORM: UNSPECIFIED
     Route: 065
     Dates: start: 20110711
  8. CALCIPOTRIENE. [Concomitant]
     Active Substance: CALCIPOTRIENE
     Dosage: UNK
     Route: 065
     Dates: start: 20120514
  9. DOCUSATE SODIUM. [Concomitant]
     Active Substance: DOCUSATE SODIUM
     Dosage: DOSAGE FORM: UNSPECIFIED
     Route: 065
     Dates: start: 20120518
  10. MECLIZINE HCL [Concomitant]
     Active Substance: MECLIZINE HYDROCHLORIDE
     Dosage: DOSAGE FORM: UNSPECIFIED
     Route: 065
     Dates: start: 20130413
  11. CARBOXYMETHYLCELLULOSE SODIUM. [Concomitant]
     Active Substance: CARBOXYMETHYLCELLULOSE SODIUM
     Dosage: DOSAGE FORM: UNSPECIFIED
     Route: 065
     Dates: start: 20130802
  12. HYDROXYZINE HCL [Concomitant]
     Active Substance: HYDROXYZINE HYDROCHLORIDE
     Dosage: DOSAGE FORM: UNKNOWN
     Route: 065
     Dates: start: 20130827
  13. PEGASYS [Suspect]
     Active Substance: PEGINTERFERON ALFA-2A
     Indication: CHRONIC HEPATITIS C
     Dosage: 180 ?G, QW
     Route: 058
     Dates: start: 20130821
  14. WITCH HAZEL. [Concomitant]
     Active Substance: WITCH HAZEL
     Dosage: DOSAGE FORM: UNSPECIFIED
     Route: 065
     Dates: start: 20120518
  15. BUPROPION HCL [Concomitant]
     Active Substance: BUPROPION HYDROCHLORIDE
     Dosage: DOSAGE FORM: UNSPECIFIED
     Route: 065
     Dates: start: 20130508
  16. AMLODIPINE BESYLATE. [Concomitant]
     Active Substance: AMLODIPINE BESYLATE
     Dosage: DOSAGE FORM: UNSPECIFIED
     Route: 065
     Dates: start: 20091007
  17. LIDOCAINE. [Concomitant]
     Active Substance: LIDOCAINE
     Dosage: DOSAGE FORM: UNSPECIFIED
     Route: 065
     Dates: start: 20130606
  18. FISH OIL [Concomitant]
     Active Substance: FISH OIL
     Dosage: DOSAGE FORM: UNSPECIFIED
     Route: 065
     Dates: start: 20100827
  19. HYDROCORTISONE ACETATE W/PRAMOCAINE HCL [Concomitant]
     Dosage: DOSAGE FORM: UNSPECIFIED
     Route: 065
     Dates: start: 20120606

REACTIONS (8)
  - Ocular icterus [Recovered/Resolved]
  - Aspartate aminotransferase increased [Unknown]
  - Abdominal distension [Unknown]
  - Alanine aminotransferase increased [Unknown]
  - Weight increased [Unknown]
  - Dyspepsia [Unknown]
  - Hyperbilirubinaemia [Unknown]
  - Chills [Unknown]

NARRATIVE: CASE EVENT DATE: 20130918
